FAERS Safety Report 5866093-X (Version None)
Quarter: 2008Q3

REPORT INFORMATION
  Report Type: 
  Country: None (occurrence: None)
  Receive Date: 20080829
  Receipt Date: 20080818
  Transmission Date: 20090109
  Serious: Yes (Life-Threatening, Other)
  Sender: FDA-Public Use
  Company Number: GB-PFIZER INC-2008066166

PATIENT
  Sex: Female

DRUGS (1)
  1. AROMASIN [Suspect]
     Dates: start: 20060209, end: 20080806

REACTIONS (1)
  - DEEP VEIN THROMBOSIS [None]
